FAERS Safety Report 4607010-X (Version None)
Quarter: 2005Q1

REPORT INFORMATION
  Report Type: 
  Country: None (occurrence: None)
  Receive Date: 20050309
  Receipt Date: 20050221
  Transmission Date: 20050727
  Serious: Yes (Hospitalization)
  Sender: FDA-Public Use
  Company Number: USA030330430

PATIENT
  Age: 61 Year
  Sex: Female
  Weight: 95 kg

DRUGS (2)
  1. HUMULIN R [Suspect]
     Indication: DIABETES MELLITUS
     Dosage: 10 U DAY
  2. HUMULIN N [Suspect]
     Indication: DIABETES MELLITUS

REACTIONS (12)
  - BLOOD GLUCOSE INCREASED [None]
  - CATARACT [None]
  - DEHYDRATION [None]
  - DIABETES MELLITUS INADEQUATE CONTROL [None]
  - DRUG TOXICITY [None]
  - EYE LASER SURGERY [None]
  - FATIGUE [None]
  - MALAISE [None]
  - SINUSITIS [None]
  - TOE OPERATION [None]
  - TOOTH INFECTION [None]
  - VOMITING [None]
